FAERS Safety Report 25483809 (Version 1)
Quarter: 2025Q2

REPORT INFORMATION
  Report Type: Spontaneous
  Country: US (occurrence: US)
  Receive Date: 20250626
  Receipt Date: 20250626
  Transmission Date: 20250716
  Serious: No
  Sender: DIFGEN PHARMACEUTICALS LLC
  Company Number: US-Difgen-012048

PATIENT

DRUGS (1)
  1. NICOTINE [Suspect]
     Active Substance: NICOTINE
     Indication: Product used for unknown indication
     Route: 062

REACTIONS (5)
  - Feeling abnormal [Recovered/Resolved]
  - Product physical issue [Unknown]
  - Product adhesion issue [Unknown]
  - Feeling jittery [Recovered/Resolved]
  - Insomnia [Recovered/Resolved]
